FAERS Safety Report 4581510-3 (Version None)
Quarter: 2005Q1

REPORT INFORMATION
  Report Type: 
  Country: None (occurrence: None)
  Receive Date: 20050214
  Receipt Date: 20041104
  Transmission Date: 20050727
  Serious: Yes (Other)
  Sender: FDA-Public Use
  Company Number: US-GLAXOSMITHKLINE-A0532848A

PATIENT
  Sex: Male

DRUGS (2)
  1. LAMICTAL [Suspect]
     Indication: PARTIAL SEIZURES
     Route: 048
  2. TOPAMAX [Concomitant]

REACTIONS (1)
  - ANAEMIA MACROCYTIC [None]
